FAERS Safety Report 20425537 (Version 1)
Quarter: 2022Q1

REPORT INFORMATION
  Report Type: Report from Study
  Country: US (occurrence: US)
  Receive Date: 20220204
  Receipt Date: 20220204
  Transmission Date: 20220423
  Serious: No
  Sender: FDA-Public Use
  Company Number: US-EXELIXIS-CABO-21038686

PATIENT
  Sex: Male

DRUGS (2)
  1. CABOMETYX [Suspect]
     Active Substance: CABOZANTINIB S-MALATE
     Indication: Prostate cancer
     Dosage: 40 MG, QD
     Dates: start: 20210225
  2. KEYTRUDA [Concomitant]
     Active Substance: PEMBROLIZUMAB
     Indication: Prostate cancer

REACTIONS (8)
  - Neuropathy peripheral [Unknown]
  - Myalgia [Unknown]
  - Drug ineffective [Unknown]
  - Blood potassium decreased [Unknown]
  - Arthralgia [Unknown]
  - Decreased appetite [Unknown]
  - Diarrhoea [Unknown]
  - Off label use [Unknown]
